FAERS Safety Report 19738356 (Version 3)
Quarter: 2025Q2

REPORT INFORMATION
  Report Type: Spontaneous
  Country: US (occurrence: US)
  Receive Date: 20210824
  Receipt Date: 20250516
  Transmission Date: 20250717
  Serious: No
  Sender: COHERUS
  Company Number: US-COHERUS BIOSCIENCES, INC.- 2021-COH-US003311

PATIENT

DRUGS (8)
  1. UDENYCA [Suspect]
     Active Substance: PEGFILGRASTIM-CBQV
     Indication: Infection prophylaxis
     Route: 058
     Dates: start: 2021
  2. CLOBETASOL PROPIONATE [Concomitant]
     Active Substance: CLOBETASOL PROPIONATE
     Indication: Dry skin
     Route: 061
  3. Cerave Psoriasis [Concomitant]
     Indication: Dry skin
  4. GRANIX [Concomitant]
     Active Substance: TBO-FILGRASTIM
     Dates: start: 2016
  5. IMODIUM [Concomitant]
     Active Substance: LOPERAMIDE HYDROCHLORIDE
     Indication: Diarrhoea
     Dosage: 4-6 TABLETS, DAILY WITHIN 2-3 HOURS OF UDENYCA ADMINISTRATION
     Dates: start: 2021
  6. MUPIROCIN [Concomitant]
     Active Substance: MUPIROCIN
     Indication: Epistaxis
     Dosage: ^APPLY SMALL AMOUNT TO NOSE^, BID
     Route: 061
     Dates: start: 2021
  7. AFRIN [Concomitant]
     Active Substance: OXYMETAZOLINE HYDROCHLORIDE
     Indication: Epistaxis
  8. Diphenhydramine;Lidocaine;Nystatin [Concomitant]
     Indication: Dental disorder prophylaxis

REACTIONS (11)
  - Diarrhoea [Not Recovered/Not Resolved]
  - Epistaxis [Recovered/Resolved]
  - Hypoaesthesia oral [Not Recovered/Not Resolved]
  - Tongue haemorrhage [Not Recovered/Not Resolved]
  - Oral pain [Not Recovered/Not Resolved]
  - Tenderness [Not Recovered/Not Resolved]
  - Pain in jaw [Not Recovered/Not Resolved]
  - Gingival pain [Not Recovered/Not Resolved]
  - Eye pain [Not Recovered/Not Resolved]
  - Oral pain [Not Recovered/Not Resolved]
  - Dry skin [Not Recovered/Not Resolved]

NARRATIVE: CASE EVENT DATE: 20160101
